FAERS Safety Report 24034396 (Version 1)
Quarter: 2024Q3

REPORT INFORMATION
  Report Type: Spontaneous
  Country: US (occurrence: US)
  Receive Date: 20240701
  Receipt Date: 20240701
  Transmission Date: 20241017
  Serious: Yes (Other)
  Sender: ACCORD
  Company Number: US-MLMSERVICE-20240613-PI099246-00272-1

PATIENT
  Age: 33 Year
  Sex: Female

DRUGS (2)
  1. PROGESTERONE [Suspect]
     Active Substance: PROGESTERONE
     Indication: In vitro fertilisation
     Route: 030
  2. ESTROGENON [Concomitant]
     Indication: In vitro fertilisation
     Dosage: 2X/DAY

REACTIONS (3)
  - Type IV hypersensitivity reaction [Recovered/Resolved]
  - Eosinophilic pneumonia acute [Recovered/Resolved]
  - Off label use [Unknown]
